FAERS Safety Report 24250175 (Version 3)
Quarter: 2024Q4

REPORT INFORMATION
  Report Type: Spontaneous
  Country: US (occurrence: US)
  Receive Date: 20240826
  Receipt Date: 20241014
  Transmission Date: 20250114
  Serious: No
  Sender: CALLIDITAS THERAPEUTICS AB
  Company Number: US-Calliditas-2024CAL01561

PATIENT
  Age: 54 Year
  Sex: Male
  Weight: 87.8 kg

DRUGS (6)
  1. TARPEYO [Suspect]
     Active Substance: BUDESONIDE
     Indication: Haematuria
     Route: 048
     Dates: start: 20240326
  2. ACETAMINOPHEN [Concomitant]
     Active Substance: ACETAMINOPHEN
     Dosage: 2 TANS EVERY 6 HOURS
     Route: 048
     Dates: start: 20240923
  3. LASIX [Concomitant]
     Active Substance: FUROSEMIDE
     Dates: start: 20240311
  4. COZAAR [Concomitant]
     Active Substance: LOSARTAN POTASSIUM
     Dosage: 1 TAB TWICE DAILY
     Route: 048
     Dates: start: 20230519
  5. RHOPRESSA [Concomitant]
     Active Substance: NETARSUDIL MESYLATE
     Dosage: 1 GTT ONCE A DAY
     Route: 047
     Dates: start: 20230519
  6. TESTOSTERONE CYPIONATE [Concomitant]
     Active Substance: TESTOSTERONE CYPIONATE
     Dosage: 0.5 ML ONCE A WEEK
     Route: 030

REACTIONS (8)
  - Rash [Unknown]
  - Muscle spasms [Recovered/Resolved]
  - Blood glucose increased [Unknown]
  - Acne [Unknown]
  - Feeling abnormal [Unknown]
  - Euphoric mood [Unknown]
  - Blood cholesterol increased [Unknown]
  - Low density lipoprotein increased [Unknown]

NARRATIVE: CASE EVENT DATE: 20240701
